FAERS Safety Report 22675452 (Version 2)
Quarter: 2025Q2

REPORT INFORMATION
  Report Type: Report from Study
  Country: US (occurrence: US)
  Receive Date: 20230706
  Receipt Date: 20250425
  Transmission Date: 20250717
  Serious: Yes (Hospitalization, Other)
  Sender: ROCHE
  Company Number: US-ROCHE-3380787

PATIENT
  Age: 78 Year
  Sex: Female

DRUGS (1)
  1. ACTEMRA [Suspect]
     Active Substance: TOCILIZUMAB
     Indication: Rheumatoid arthritis
     Route: 058

REACTIONS (6)
  - Upper gastrointestinal haemorrhage [Unknown]
  - Neoplasm malignant [Unknown]
  - Myocardial infarction [Unknown]
  - Body temperature increased [Unknown]
  - Asthenia [Unknown]
  - Haemorrhage [Unknown]
